FAERS Safety Report 6766469-2 (Version None)
Quarter: 2010Q2

REPORT INFORMATION
  Report Type: 
  Country: None (occurrence: None)
  Receive Date: 20100611
  Receipt Date: 20100602
  Transmission Date: 20101027
  Serious: Yes (Hospitalization)
  Sender: FDA-Public Use
  Company Number: GXKR2010GB06177

PATIENT
  Age: 52 Year
  Sex: Male

DRUGS (5)
  1. SIMVASTATIN [Suspect]
     Dosage: 40 MG, QD
     Route: 048
  2. FUSIDIC ACID [Interacting]
     Indication: LOCALISED INFECTION
     Dosage: 500 MG, TID
     Route: 065
  3. FLOXACILLIN SODIUM [Concomitant]
     Indication: OSTEOMYELITIS
     Dosage: 500 MG, QID
     Route: 065
  4. AMLODIPINE [Concomitant]
     Dosage: 10 MG, QD
     Route: 065
  5. HUMALOG [Interacting]
     Indication: DIABETES MELLITUS
     Dosage: 18 UNITS (U) MANE, 16 U NOCTE
     Route: 065

REACTIONS (7)
  - AREFLEXIA [None]
  - DRUG INTERACTION [None]
  - MECHANICAL VENTILATION [None]
  - QUADRIPARESIS [None]
  - RENAL FAILURE [None]
  - RESPIRATORY DISORDER [None]
  - RHABDOMYOLYSIS [None]
